FAERS Safety Report 8957084 (Version 1)
Quarter: 2012Q4

REPORT INFORMATION
  Report Type: 
  Country: FR (occurrence: FR)
  Receive Date: 20121211
  Receipt Date: 20121211
  Transmission Date: 20130627
  Serious: Yes (Other)
  Sender: FDA-Public Use
  Company Number: FR-MERCK-1212FRA001694

PATIENT
  Age: 69 Year
  Sex: Female
  Weight: 87 kg

DRUGS (9)
  1. VICTRELIS [Suspect]
     Indication: HEPATITIS C
     Dosage: 800 mg, qd
     Route: 048
     Dates: start: 20110804, end: 20120603
  2. VIRAFERONPEG [Suspect]
     Indication: HEPATITIS C
     Dosage: 120 Microgram, qw
     Route: 058
     Dates: start: 20110711, end: 20120528
  3. REBETOL [Suspect]
     Dosage: 800 mg, qd
     Route: 048
     Dates: start: 20110209, end: 20120603
  4. ARANESP (DARBEPOETIN ALFA) [Concomitant]
     Indication: HEPATITIS C
     Dosage: 500 Microgram, qd
     Dates: start: 20111010, end: 20120515
  5. LEVOTHYROX [Concomitant]
     Indication: HYPOTHYROIDISM
     Dosage: 200 Microgram, qd
  6. AVLOCARDYL [Concomitant]
     Indication: HYPERTENSION
     Dosage: 40 mg, qd
  7. DIAMICRON [Concomitant]
     Indication: TYPE 2 DIABETES MELLITUS
     Dosage: 60 mg, qd
  8. KALEORID [Concomitant]
     Indication: HYPERTENSION
     Dosage: 1000 mg, qd
  9. SPIRONOLACTONE [Concomitant]
     Indication: HYPERTENSION
     Dosage: 75 mg, qd

REACTIONS (1)
  - Hepatic cancer [Recovered/Resolved]
